FAERS Safety Report 24603608 (Version 1)
Quarter: 2024Q4

REPORT INFORMATION
  Report Type: Spontaneous
  Country: CN (occurrence: CN)
  Receive Date: 20241111
  Receipt Date: 20241111
  Transmission Date: 20250114
  Serious: Yes (Other)
  Sender: NOVARTIS
  Company Number: CN-002147023-NVSC2024CN215438

PATIENT
  Age: 73 Year
  Sex: Female

DRUGS (2)
  1. DABRAFENIB [Suspect]
     Active Substance: DABRAFENIB
     Indication: Lung adenocarcinoma
     Dosage: 150 MG
     Route: 048
     Dates: start: 20241028, end: 20241104
  2. TRAMETINIB [Suspect]
     Active Substance: TRAMETINIB
     Indication: Lung adenocarcinoma
     Dosage: 2 MG
     Route: 048
     Dates: start: 20241028, end: 20241104

REACTIONS (2)
  - Hydrothorax [Unknown]
  - Hypertension [Unknown]

NARRATIVE: CASE EVENT DATE: 20241103
